FAERS Safety Report 4620373-4 (Version None)
Quarter: 2005Q1

REPORT INFORMATION
  Report Type: 
  Country: None (occurrence: None)
  Receive Date: 20050328
  Receipt Date: 20050323
  Transmission Date: 20050727
  Serious: Yes (Hospitalization)
  Sender: FDA-Public Use
  Company Number: US-JNJFOC-20040903036

PATIENT
  Sex: Female
  Weight: 92.53 kg

DRUGS (13)
  1. TOPAMAX [Suspect]
     Route: 049
  2. DILANTIN [Suspect]
  3. DILANTIN [Suspect]
     Dosage: INCREASED FROM USUAL DOSE
  4. SINGULAIR [Concomitant]
     Indication: ASTHMA
  5. POTASSIUM CHLORIDE [Concomitant]
  6. PROCARDIA XL [Concomitant]
     Indication: HYPERTENSION
  7. CALCIUM GLUCONATE [Concomitant]
  8. LORTAB [Concomitant]
  9. LORTAB [Concomitant]
     Indication: PAIN
  10. FOSAMAX [Concomitant]
  11. PROZAC [Concomitant]
  12. ZYRTEC [Concomitant]
  13. OXYBUTYNIN HYDROCHLORIDE [Concomitant]

REACTIONS (18)
  - ANTICONVULSANT DRUG LEVEL ABOVE THERAPEUTIC [None]
  - BALANCE DISORDER [None]
  - BLOOD MAGNESIUM DECREASED [None]
  - BLOOD POTASSIUM DECREASED [None]
  - COGNITIVE DETERIORATION [None]
  - CONVULSION [None]
  - DIZZINESS [None]
  - EAR INFECTION [None]
  - FALL [None]
  - GAIT DISTURBANCE [None]
  - HEADACHE [None]
  - LACERATION [None]
  - NYSTAGMUS [None]
  - REFLEXES ABNORMAL [None]
  - STRESS [None]
  - SYNCOPE [None]
  - VITAMIN B12 DECREASED [None]
  - WALKING AID USER [None]
